FAERS Safety Report 24103578 (Version 3)
Quarter: 2024Q3

REPORT INFORMATION
  Report Type: Spontaneous
  Country: US (occurrence: US)
  Receive Date: 20240717
  Receipt Date: 20240925
  Transmission Date: 20241017
  Serious: Yes (Other)
  Sender: JOHNSON AND JOHNSON
  Company Number: US-JNJFOC-20240726433

PATIENT
  Age: 76 Year
  Sex: Male
  Weight: 97 kg

DRUGS (1)
  1. SIMPONI ARIA [Suspect]
     Active Substance: GOLIMUMAB
     Indication: Psoriatic arthropathy
     Route: 041
     Dates: start: 20220505, end: 20240702

REACTIONS (3)
  - Skin laceration [Not Recovered/Not Resolved]
  - Cellulitis [Not Recovered/Not Resolved]
  - Impaired healing [Recovering/Resolving]

NARRATIVE: CASE EVENT DATE: 20240703
